FAERS Safety Report 9535577 (Version 1)
Quarter: 2013Q3

REPORT INFORMATION
  Report Type: Report from Study
  Country: MX (occurrence: MX)
  Receive Date: 20130919
  Receipt Date: 20130919
  Transmission Date: 20140515
  Serious: Yes (Hospitalization)
  Sender: FDA-Public Use
  Company Number: MX-ROCHE-1275914

PATIENT
  Age: 51 Year
  Sex: Female
  Weight: 75 kg

DRUGS (3)
  1. XELODA [Suspect]
     Indication: COLORECTAL CANCER METASTATIC
     Route: 048
     Dates: start: 201204, end: 201308
  2. AVASTIN [Suspect]
     Indication: COLORECTAL CANCER METASTATIC
     Route: 042
     Dates: start: 201303, end: 201306
  3. OXALIPLATIN [Concomitant]
     Route: 042
     Dates: start: 201303, end: 201306

REACTIONS (4)
  - Disease progression [Not Recovered/Not Resolved]
  - Weight increased [Not Recovered/Not Resolved]
  - Asthenia [Recovered/Resolved]
  - Somnolence [Recovered/Resolved]
